FAERS Safety Report 17438542 (Version 1)
Quarter: 2020Q1

REPORT INFORMATION
  Report Type: Spontaneous
  Country: DE (occurrence: DE)
  Receive Date: 20200220
  Receipt Date: 20200220
  Transmission Date: 20200409
  Serious: Yes (Hospitalization)
  Sender: FDA-Public Use
  Company Number: DE-ROCHE-2551856

PATIENT
  Age: 81 Year
  Sex: Male
  Weight: 77.6 kg

DRUGS (1)
  1. ALECENSA [Suspect]
     Active Substance: ALECTINIB HYDROCHLORIDE
     Indication: LUNG ADENOCARCINOMA
     Dosage: MOST RECENT DOSE PRIOR TO AE /JAN/2020
     Route: 048
     Dates: start: 20170813

REACTIONS (2)
  - Cholecystitis acute [Not Recovered/Not Resolved]
  - Gallbladder abscess [Not Recovered/Not Resolved]
